FAERS Safety Report 8079167-2 (Version None)
Quarter: 2012Q1

REPORT INFORMATION
  Report Type: 
  Country: None (occurrence: None)
  Receive Date: 20120128
  Receipt Date: 20110810
  Transmission Date: 20120608
  Serious: No
  Sender: FDA-Public Use
  Company Number: US-ABBOTT-11P-163-0845327-00

PATIENT
  Sex: Female
  Weight: 97.156 kg

DRUGS (9)
  1. PASSIVE SMOKE [Concomitant]
     Indication: PRODUCT USED FOR UNKNOWN INDICATION
     Dosage: 0.08 HOURS, ONCE DAILY
     Route: 048
     Dates: start: 20091122, end: 20100820
  2. MULTI-VITAMINS [Concomitant]
     Indication: PRODUCT USED FOR UNKNOWN INDICATION
     Route: 048
     Dates: start: 20091122, end: 20100820
  3. CAFFEINE CITRATE [Concomitant]
     Indication: PRODUCT USED FOR UNKNOWN INDICATION
     Dosage: 4 SERVINGS OF SODA PER DAY
     Route: 048
     Dates: start: 20091122, end: 20100820
  4. PREDNISONE TAB [Concomitant]
     Indication: ABDOMINAL PAIN UPPER
     Route: 048
     Dates: start: 20100316, end: 20100323
  5. HUMIRA [Suspect]
     Indication: CROHN'S DISEASE
     Dates: start: 20091122, end: 20091201
  6. VITAMIN D [Concomitant]
     Indication: PRODUCT USED FOR UNKNOWN INDICATION
     Route: 048
     Dates: start: 20100530, end: 20100820
  7. CIGARETTE SMOKING [Concomitant]
     Indication: PRODUCT USED FOR UNKNOWN INDICATION
     Dosage: 3.5 CIGARETTES PER DAY
     Route: 055
     Dates: start: 20091122, end: 20100820
  8. VITAMIN B-12 [Concomitant]
     Indication: PRODUCT USED FOR UNKNOWN INDICATION
     Route: 048
     Dates: start: 20100530, end: 20100820
  9. HUMIRA [Suspect]
     Dates: start: 20100325, end: 20100820

REACTIONS (5)
  - ABDOMINAL PAIN UPPER [None]
  - PYREXIA [None]
  - DYSPEPSIA [None]
  - HEADACHE [None]
  - MIGRAINE [None]
